FAERS Safety Report 16980163 (Version 2)
Quarter: 2019Q4

REPORT INFORMATION
  Report Type: Spontaneous
  Country: FR (occurrence: FR)
  Receive Date: 20191031
  Receipt Date: 20191101
  Transmission Date: 20200122
  Serious: Yes (Other)
  Sender: FDA-Public Use
  Company Number: FR-ALEXION-A201916575

PATIENT

DRUGS (1)
  1. STRENSIQ [Suspect]
     Active Substance: ASFOTASE ALFA
     Indication: PRODUCT USED FOR UNKNOWN INDICATION
     Dosage: UNK
     Route: 065

REACTIONS (9)
  - Condition aggravated [Unknown]
  - Fracture [Unknown]
  - Adenosine deaminase increased [Unknown]
  - Bone disorder [Recovering/Resolving]
  - Decreased appetite [Unknown]
  - Neutralising antibodies positive [Unknown]
  - Growth retardation [Unknown]
  - Hypotonia [Unknown]
  - Hip deformity [Unknown]
